FAERS Safety Report 21223051 (Version 1)
Quarter: 2022Q3

REPORT INFORMATION
  Report Type: Spontaneous
  Country: US (occurrence: None)
  Receive Date: 20220817
  Receipt Date: 20220817
  Transmission Date: 20221027
  Serious: No
  Sender: FDA-Public Use
  Company Number: None

PATIENT
  Age: 35 Year
  Sex: Male
  Weight: 135 kg

DRUGS (1)
  1. OXYCODONE [Suspect]
     Active Substance: OXYCODONE
     Dates: start: 20220809

REACTIONS (3)
  - Drug ineffective [None]
  - Product substitution issue [None]
  - Withdrawal syndrome [None]
